FAERS Safety Report 10583761 (Version 1)
Quarter: 2014Q4

REPORT INFORMATION
  Report Type: Spontaneous
  Country: US (occurrence: None)
  Receive Date: 20141112
  Receipt Date: 20141112
  Transmission Date: 20150529
  Serious: Yes (Hospitalization)
  Sender: FDA-Public Use
  Company Number: IMP_08080_2014

PATIENT
  Age: 35 Year
  Sex: Female

DRUGS (2)
  1. BACLOFEN. [Suspect]
     Active Substance: BACLOFEN
     Indication: PRODUCT USED FOR UNKNOWN INDICATION
     Dosage: 1200 MG, [NOT THE PRESCRIBED DOSE] ORAL
     Route: 048
  2. ACETAMINOPHEN. [Suspect]
     Active Substance: ACETAMINOPHEN
     Indication: PRODUCT USED FOR UNKNOWN INDICATION
     Dosage: 5 G, [NOT THE PRESCRIBED DOSE]

REACTIONS (7)
  - Dyskinesia [None]
  - Hepatic enzyme increased [None]
  - Blood magnesium decreased [None]
  - Encephalopathy [None]
  - Hypothermia [None]
  - Status epilepticus [None]
  - Bradycardia [None]
